FAERS Safety Report 14570345 (Version 2)
Quarter: 2018Q2

REPORT INFORMATION
  Report Type: Spontaneous
  Country: ES (occurrence: ES)
  Receive Date: 20180226
  Receipt Date: 20180423
  Transmission Date: 20180711
  Serious: Yes (Hospitalization)
  Sender: FDA-Public Use
  Company Number: ES-SUN PHARMACEUTICAL INDUSTRIES LTD-2018R1-164264

PATIENT
  Age: 56 Year
  Sex: Male

DRUGS (3)
  1. OLMESARTAN [Concomitant]
     Active Substance: OLMESARTAN
     Indication: HYPERTENSION
     Dosage: 40 MG, DAILY (1 COMP/DIA)
     Route: 048
     Dates: start: 201709, end: 20180208
  2. ALLOPURINOL. [Suspect]
     Active Substance: ALLOPURINOL
     Indication: GOUT
     Dosage: DESCOCNOCIDA (NO RECUERDA LA DOSIS)
     Route: 048
     Dates: start: 20180118, end: 20180121
  3. ESOMEPRAZOL (1172A) [Concomitant]
     Indication: ABDOMINAL PAIN UPPER
     Dosage: 40 MG, DAILY (1 COMPR/DIA)
     Route: 048
     Dates: start: 201709, end: 20180125

REACTIONS (1)
  - Histiocytosis haematophagic [Recovering/Resolving]

NARRATIVE: CASE EVENT DATE: 20180124
